FAERS Safety Report 4362853-5 (Version None)
Quarter: 2004Q2

REPORT INFORMATION
  Report Type: 
  Country: None (occurrence: None)
  Receive Date: 20040517
  Receipt Date: 20040402
  Transmission Date: 20050107
  Serious: No
  Sender: FDA-Public Use
  Company Number: S04-USA-01820-01

PATIENT
  Age: 80 Year
  Sex: Female

DRUGS (5)
  1. NAMENDA [Suspect]
     Dosage: 10 MG BID PO
     Route: 048
     Dates: start: 20040326
  2. NAMENDA [Suspect]
     Dosage: 5 MG QD PO
     Route: 048
     Dates: start: 20040305, end: 20040311
  3. ARICEPT [Concomitant]
  4. NAMENDA [Suspect]
     Dosage: 10 MG QD PO
     Route: 048
     Dates: start: 20040312, end: 20040318
  5. NAMENDA [Suspect]
     Dosage: 15 MG QD PO
     Route: 048
     Dates: start: 20040319, end: 20040325

REACTIONS (1)
  - DISORIENTATION [None]
